FAERS Safety Report 13975089 (Version 2)
Quarter: 2017Q4

REPORT INFORMATION
  Report Type: Spontaneous
  Country: US (occurrence: US)
  Receive Date: 20170915
  Receipt Date: 20171107
  Transmission Date: 20180321
  Serious: Yes (Hospitalization, Other)
  Sender: FDA-Public Use
  Company Number: US-009507513-1709USA001788

PATIENT
  Age: 48 Year
  Sex: Female

DRUGS (2)
  1. SINEMET [Suspect]
     Active Substance: CARBIDOPA\LEVODOPA
     Dosage: INJECTABLE
  2. RYTARY [Suspect]
     Active Substance: CARBIDOPA\LEVODOPA

REACTIONS (6)
  - Cardiac flutter [Unknown]
  - Drug ineffective [Unknown]
  - Labelled drug-food interaction medication error [Unknown]
  - Dyskinesia [Unknown]
  - Adverse event [Unknown]
  - Intentional product use issue [Unknown]
